FAERS Safety Report 20360804 (Version 1)
Quarter: 2022Q1

REPORT INFORMATION
  Report Type: Spontaneous
  Country: SA (occurrence: None)
  Receive Date: 20220121
  Receipt Date: 20220121
  Transmission Date: 20220424
  Serious: Yes (Hospitalization)
  Sender: FDA-Public Use
  Company Number: 2016SE27940

PATIENT
  Age: 62 Year
  Sex: Male

DRUGS (8)
  1. BYETTA [Suspect]
     Active Substance: EXENATIDE
     Indication: Diabetes mellitus
     Route: 058
     Dates: start: 20160202, end: 20160214
  2. BYETTA [Suspect]
     Active Substance: EXENATIDE
     Indication: Obesity
     Route: 058
     Dates: start: 20160202, end: 20160214
  3. PILLS FOR HEART PROBLEM [Concomitant]
     Indication: Cardiac disorder
  4. ASPIRIN [Concomitant]
     Active Substance: ASPIRIN
     Indication: Myocardial ischaemia
     Dates: start: 2006
  5. ALLOPURINOL [Concomitant]
     Active Substance: ALLOPURINOL
     Indication: Gout
     Dates: start: 2005, end: 2015
  6. EZETIMIBE [Concomitant]
     Active Substance: EZETIMIBE
     Indication: Lipids abnormal
     Dates: start: 2014
  7. COLCHICINE [Concomitant]
     Active Substance: COLCHICINE
     Indication: Gout
     Dates: start: 20160131
  8. UNSPECIFIED INGREDIENT [Concomitant]
     Active Substance: UNSPECIFIED INGREDIENT
     Indication: Myocardial ischaemia
     Dates: start: 2006

REACTIONS (11)
  - Chest pain [Unknown]
  - Blood potassium increased [Unknown]
  - Pruritus [Unknown]
  - Injection site hypersensitivity [Unknown]
  - Weight decreased [Unknown]
  - Nausea [Unknown]
  - Vomiting [Unknown]
  - Dysgeusia [Unknown]
  - Salivary hypersecretion [Unknown]
  - Pruritus [Unknown]
  - Decreased appetite [Unknown]

NARRATIVE: CASE EVENT DATE: 20160210
